FAERS Safety Report 18490839 (Version 2)
Quarter: 2020Q4

REPORT INFORMATION
  Report Type: Spontaneous
  Country: IT (occurrence: IT)
  Receive Date: 20201111
  Receipt Date: 20201113
  Transmission Date: 20210114
  Serious: Yes (Hospitalization)
  Sender: FDA-Public Use
  Company Number: IT-ABBVIE-20K-083-3647015-00

PATIENT
  Age: 83 Year
  Sex: Male

DRUGS (1)
  1. IMBRUVICA [Suspect]
     Active Substance: IBRUTINIB
     Indication: CHRONIC LEUKAEMIA
     Route: 048
     Dates: start: 20160527

REACTIONS (2)
  - Atrial fibrillation [Unknown]
  - Embolic stroke [Unknown]

NARRATIVE: CASE EVENT DATE: 20201026
